FAERS Safety Report 7213698-X (Version None)
Quarter: 2011Q1

REPORT INFORMATION
  Report Type: 
  Country: None (occurrence: None)
  Receive Date: 20110106
  Receipt Date: 20101228
  Transmission Date: 20110831
  Serious: Yes (Other)
  Sender: FDA-Public Use
  Company Number: US-PFIZER INC-2010164122

PATIENT
  Sex: Female
  Weight: 87.528 kg

DRUGS (15)
  1. TRICOR [Concomitant]
     Indication: BLOOD CHOLESTEROL INCREASED
  2. ALLEGRA [Concomitant]
     Indication: HYPERSENSITIVITY
  3. NEURONTIN [Suspect]
     Indication: PAIN
     Dosage: 600 MG, 1X/DAY
     Route: 048
     Dates: start: 20091201
  4. LYRICA [Suspect]
     Indication: PAIN
     Dosage: 150 MG, 2X/DAY
     Route: 048
     Dates: start: 20101206, end: 20101209
  5. DETROL LA [Concomitant]
     Indication: BLADDER DYSFUNCTION
     Dosage: 4 MG, 1X/DAY
     Route: 048
     Dates: start: 20101101
  6. ALLEGRA [Concomitant]
     Indication: PRURITUS GENERALISED
     Dosage: 180 MG, 1X/DAY
     Route: 048
  7. VITAMIN D [Concomitant]
     Dosage: 2000 IU, 1X/DAY
     Route: 048
  8. MS CONTIN [Concomitant]
     Indication: PAIN MANAGEMENT
     Dosage: UNK
  9. LYRICA [Suspect]
     Indication: NERVE INJURY
  10. TRICOR [Concomitant]
     Indication: BLOOD TRIGLYCERIDES INCREASED
     Dosage: 145 MG, 1X/DAY
     Route: 048
  11. NEURONTIN [Suspect]
     Indication: NERVE INJURY
  12. NEURONTIN [Suspect]
     Indication: NEURALGIA
  13. LYRICA [Suspect]
     Indication: NEURALGIA
  14. CELEBREX [Concomitant]
     Indication: ARTHRITIS
     Dosage: 200 MG, 1X/DAY
     Route: 048
  15. CELEBREX [Concomitant]
     Indication: PAIN

REACTIONS (8)
  - QUALITY OF LIFE DECREASED [None]
  - DISTURBANCE IN ATTENTION [None]
  - DRUG INEFFECTIVE [None]
  - SOMNOLENCE [None]
  - MEMORY IMPAIRMENT [None]
  - PAIN [None]
  - FEELING ABNORMAL [None]
  - BACK PAIN [None]
